FAERS Safety Report 8410573-X (Version None)
Quarter: 2012Q2

REPORT INFORMATION
  Report Type: 
  Country: None (occurrence: None)
  Receive Date: 20120323
  Receipt Date: 20111202
  Transmission Date: 20120825
  Serious: Yes (Other)
  Sender: FDA-Public Use
  Company Number: 163-21880-11120406

PATIENT
  Age: 72 Year
  Sex: Male
  Weight: 80.7403 kg

DRUGS (10)
  1. ACYCLOVIR (ACICLOVIR)(CAPSULES) [Concomitant]
  2. BACTRIM [Concomitant]
  3. CLONAZEPAM [Concomitant]
  4. AMBIEN [Concomitant]
  5. DEXAMETHASONE [Concomitant]
  6. LYRICA(PREGABALIN)(TABLETS) [Concomitant]
  7. REVLIMID [Suspect]
     Indication: MULTIPLE MYELOMA
     Dosage: 15 MG, DAILY FOR 21/28 DAYS, PO, 10 MG, DAILY FOR 21/28 DAYS, PO
     Route: 048
     Dates: start: 20101027, end: 20111202
  8. REVLIMID [Suspect]
     Indication: MULTIPLE MYELOMA
     Dosage: 15 MG, DAILY FOR 21/28 DAYS, PO, 10 MG, DAILY FOR 21/28 DAYS, PO
     Route: 048
     Dates: start: 20111201
  9. ASPIRIN [Concomitant]
  10. FENTANYL-100 [Concomitant]

REACTIONS (1)
  - RENAL IMPAIRMENT [None]
